FAERS Safety Report 11012329 (Version 1)
Quarter: 2015Q2

REPORT INFORMATION
  Report Type: Spontaneous
  Country: US (occurrence: None)
  Receive Date: 20150410
  Receipt Date: 20150410
  Transmission Date: 20150821
  Serious: No
  Sender: FDA-Public Use
  Company Number: None

PATIENT
  Age: 54 Year
  Sex: Male
  Weight: 141 kg

DRUGS (3)
  1. LEUCOVORIN CALCIUM. [Suspect]
     Active Substance: LEUCOVORIN CALCIUM
     Dates: end: 20150328
  2. RITUXIMAB (MOAB C2B8 ANTI CD20, CHIMERIC) [Suspect]
     Active Substance: RITUXIMAB
     Dates: end: 20150330
  3. METHOTREXATE [Suspect]
     Active Substance: METHOTREXATE
     Dates: end: 20150328

REACTIONS (20)
  - Device related infection [None]
  - Tachycardia [None]
  - Brain midline shift [None]
  - Blood sodium decreased [None]
  - White blood cell count increased [None]
  - Central nervous system lymphoma [None]
  - Cerebral haemorrhage [None]
  - Platelet count decreased [None]
  - Encephalopathy [None]
  - Toxicity to various agents [None]
  - Status epilepticus [None]
  - Vasogenic cerebral oedema [None]
  - Blood chloride decreased [None]
  - Candida test positive [None]
  - Blood calcium increased [None]
  - Malignant neoplasm progression [None]
  - Pyrexia [None]
  - Carbon dioxide increased [None]
  - Fungal test positive [None]
  - Unresponsive to stimuli [None]

NARRATIVE: CASE EVENT DATE: 20150328
